FAERS Safety Report 23209785 (Version 5)
Quarter: 2023Q4

REPORT INFORMATION
  Report Type: Spontaneous
  Country: CA (occurrence: CA)
  Receive Date: 20231121
  Receipt Date: 20231219
  Transmission Date: 20240110
  Serious: Yes (Life-Threatening, Hospitalization, Other)
  Sender: FDA-Public Use
  Company Number: CA-CELLTRION INC.-2023CA021863

PATIENT

DRUGS (14)
  1. INFLECTRA [Suspect]
     Active Substance: INFLIXIMAB-DYYB
     Indication: Crohn^s disease
     Dosage: 800 MG (10 MG/KG) WEEKS 0,2,6 THEN Q 4 WEEKS (DOSE ASAP)
     Route: 042
     Dates: start: 20231002
  2. INFLECTRA [Suspect]
     Active Substance: INFLIXIMAB-DYYB
     Indication: Colitis ulcerative
     Dosage: 800 MG (10 MG/KG) WEEKS 0,2,6 THEN Q 4 WEEKS (DOSE ASAP)
     Route: 042
     Dates: start: 20231023
  3. INFLECTRA [Suspect]
     Active Substance: INFLIXIMAB-DYYB
     Dosage: 800 MG (10 MG/KG) WEEKS 0,2,6 THEN Q 4 WEEKS (DOSE ASAP)
     Route: 042
     Dates: start: 20231201
  4. INFLECTRA [Suspect]
     Active Substance: INFLIXIMAB-DYYB
     Dosage: 800 MG (10 MG/KG) WEEKS 0,2,6 THEN Q 4 WEEKS (DOSE ASAP)
     Route: 042
     Dates: start: 20231201, end: 20231201
  5. ACETAMINOPHEN [Concomitant]
     Active Substance: ACETAMINOPHEN
     Dosage: UNK (ES)
  6. ALESSE 28 [Concomitant]
     Active Substance: ETHINYL ESTRADIOL\LEVONORGESTREL
     Dosage: UNK
  7. BUTYLSCOPOLAMINE BROMIDE [Concomitant]
     Active Substance: BUTYLSCOPOLAMINE BROMIDE
     Dosage: UNK
  8. CETIRIZINE [Concomitant]
     Active Substance: CETIRIZINE HYDROCHLORIDE
     Dosage: UNK
  9. IRON [Concomitant]
     Active Substance: IRON
     Dosage: UNK
  10. VITAMINS [Concomitant]
     Active Substance: VITAMINS
     Dosage: UNK
  11. OMEPRAZOLE [Concomitant]
     Active Substance: OMEPRAZOLE
     Dosage: UNK
  12. PREGABALIN [Concomitant]
     Active Substance: PREGABALIN
     Dosage: UNK
  13. CHOLECALCIFEROL [Concomitant]
     Active Substance: CHOLECALCIFEROL
     Dosage: UNK
  14. PREDNISONE [Concomitant]
     Active Substance: PREDNISONE
     Dosage: 25 MG, DAILY

REACTIONS (17)
  - Cerebral venous sinus thrombosis [Unknown]
  - Cerebral thrombosis [Unknown]
  - Condition aggravated [Recovering/Resolving]
  - Depressed level of consciousness [Unknown]
  - Migraine [Unknown]
  - Lethargy [Unknown]
  - Disorientation [Unknown]
  - Somnolence [Unknown]
  - Dyspnoea [Unknown]
  - Antiphospholipid antibodies [Unknown]
  - Infusion related reaction [Recovering/Resolving]
  - Anxiety [Unknown]
  - Oxygen saturation decreased [Recovered/Resolved]
  - Blood iron decreased [Unknown]
  - Back pain [Unknown]
  - Arthralgia [Unknown]
  - Off label use [Unknown]

NARRATIVE: CASE EVENT DATE: 20230101
